FAERS Safety Report 19078010 (Version 1)
Quarter: 2021Q1

REPORT INFORMATION
  Report Type: Spontaneous
  Country: US (occurrence: US)
  Receive Date: 20210331
  Receipt Date: 20210331
  Transmission Date: 20210420
  Serious: Yes (Other)
  Sender: FDA-Public Use
  Company Number: None

PATIENT
  Age: 56 Year
  Sex: Male
  Weight: 103.18 kg

DRUGS (6)
  1. ATORVASTATIN [Concomitant]
     Active Substance: ATORVASTATIN
     Dates: start: 20190101
  2. PREDNISONE 20 MG [Concomitant]
     Active Substance: PREDNISONE
     Dates: start: 20200603, end: 20200714
  3. AMLODIPINE [Concomitant]
     Active Substance: AMLODIPINE BESYLATE
     Dates: start: 20110101
  4. NIVOLUMAB [Suspect]
     Active Substance: NIVOLUMAB
     Indication: PROSTATE CANCER
     Dosage: ?          OTHER FREQUENCY:EVERY 28 DAYS;?
     Route: 042
     Dates: start: 20200211, end: 20200602
  5. NAPROXEN. [Concomitant]
     Active Substance: NAPROXEN
     Dates: start: 20200525
  6. PREDNISONE 5 MG [Concomitant]
     Active Substance: PREDNISONE
     Dates: start: 20200714, end: 20201006

REACTIONS (1)
  - Arthralgia [None]

NARRATIVE: CASE EVENT DATE: 20200602
